FAERS Safety Report 6359817-9 (Version None)
Quarter: 2009Q3

REPORT INFORMATION
  Report Type: 
  Country: None (occurrence: None)
  Receive Date: 20090917
  Receipt Date: 20090914
  Transmission Date: 20100115
  Serious: Yes (Death, Hospitalization)
  Sender: FDA-Public Use
  Company Number: A0807261A

PATIENT
  Sex: Male

DRUGS (3)
  1. AVANDIA [Suspect]
     Route: 048
  2. STATINS [Concomitant]
  3. METFORMIN HCL [Concomitant]

REACTIONS (2)
  - CHEST PAIN [None]
  - DEATH [None]
